FAERS Safety Report 5406475-3 (Version None)
Quarter: 2007Q3

REPORT INFORMATION
  Report Type: 
  Country: None (occurrence: None)
  Receive Date: 20070806
  Receipt Date: 20070724
  Transmission Date: 20080115
  Serious: Yes (Life-Threatening)
  Sender: FDA-Public Use
  Company Number: JP-ELI_LILLY_AND_COMPANY-JP200707006068

PATIENT
  Age: 83 Year
  Sex: Female
  Weight: 35 kg

DRUGS (5)
  1. RALOXIFENE HYDROCHLORIDE [Suspect]
     Indication: OSTEOPOROSIS POSTMENOPAUSAL
     Dosage: 60 MG, DAILY (1/D)
     Route: 048
     Dates: start: 20050121, end: 20060105
  2. RALOXIFENE HYDROCHLORIDE [Suspect]
     Dosage: 60 MG, DAILY (1/D)
     Route: 048
     Dates: start: 20060101, end: 20060220
  3. D ALFA [Concomitant]
     Indication: OSTEOPOROSIS POSTMENOPAUSAL
     Dosage: 1 UG, DAILY (1/D)
     Route: 048
     Dates: start: 20000822, end: 20060220
  4. MAGMITT [Concomitant]
     Indication: CONSTIPATION
     Dosage: 1 G, DAILY (1/D)
     Route: 048
     Dates: start: 20000804
  5. ETODOLAC [Concomitant]
     Indication: SPONDYLOLISTHESIS
     Dosage: 400 MG, DAILY (1/D)
     Route: 048
     Dates: start: 20010115

REACTIONS (1)
  - DUODENAL ULCER [None]
